FAERS Safety Report 15992794 (Version 7)
Quarter: 2022Q3

REPORT INFORMATION
  Report Type: Spontaneous
  Country: FR (occurrence: FR)
  Receive Date: 20190221
  Receipt Date: 20220711
  Transmission Date: 20221026
  Serious: Yes (Other)
  Sender: FDA-Public Use
  Company Number: None

PATIENT

DRUGS (1)
  1. VYXEOS [Suspect]
     Active Substance: CYTARABINE\DAUNORUBICIN
     Indication: Acute myeloid leukaemia
     Dosage: 100 IU/M2, UNK
     Route: 042
     Dates: start: 20181022, end: 20181026

REACTIONS (8)
  - Oxygen saturation decreased [Recovered/Resolved]
  - Brain natriuretic peptide increased [Recovered/Resolved]
  - Pulmonary congestion [Recovered/Resolved]
  - Pyrexia [Recovered/Resolved]
  - Ejection fraction decreased [Recovered/Resolved]
  - Lung consolidation [Recovered/Resolved]
  - Abnormal faeces [Recovered/Resolved]
  - Bone marrow failure [Recovered/Resolved]

NARRATIVE: CASE EVENT DATE: 20181023
